FAERS Safety Report 20477442 (Version 1)
Quarter: 2022Q1

REPORT INFORMATION
  Report Type: Spontaneous
  Country: IT (occurrence: IT)
  Receive Date: 20220215
  Receipt Date: 20220215
  Transmission Date: 20220423
  Serious: Yes (Other)
  Sender: FDA-Public Use
  Company Number: IT-SUN PHARMACEUTICAL INDUSTRIES LTD-2022RR-327048

PATIENT
  Age: 56 Year
  Sex: Male

DRUGS (2)
  1. OLANZAPINE [Suspect]
     Active Substance: OLANZAPINE
     Indication: Movement disorder
     Dosage: 5 MILLIGRAM, DAILY
     Route: 065
  2. RISPERIDONE [Suspect]
     Active Substance: RISPERIDONE
     Indication: Movement disorder
     Dosage: 2 MILLIGRAM, DAILY
     Route: 065

REACTIONS (4)
  - Apathy [Unknown]
  - Depression [Unknown]
  - Hepatic steatosis [Recovering/Resolving]
  - Metabolic syndrome [Recovering/Resolving]
